FAERS Safety Report 21389177 (Version 1)
Quarter: 2022Q3

REPORT INFORMATION
  Report Type: Spontaneous
  Country: DK (occurrence: DK)
  Receive Date: 20220929
  Receipt Date: 20220929
  Transmission Date: 20221027
  Serious: Yes (Other)
  Sender: FDA-Public Use
  Company Number: None

PATIENT
  Age: 19 Year
  Sex: Female

DRUGS (1)
  1. LEVETIRACETAM [Suspect]
     Active Substance: LEVETIRACETAM
     Indication: Epilepsy
     Dosage: 500 MILLIGRAM DAILY; DOSAGE: 500 MG DAILY.STRENGTH: UNKNOWN.
     Route: 065
     Dates: start: 20160517, end: 201609

REACTIONS (6)
  - Fatigue [Unknown]
  - Anxiety [Not Recovered/Not Resolved]
  - Headache [Unknown]
  - Depression [Recovered/Resolved]
  - Psychotic symptom [Recovered/Resolved]
  - Depressive symptom [Recovered/Resolved]

NARRATIVE: CASE EVENT DATE: 20160801
